FAERS Safety Report 5660045-0 (Version None)
Quarter: 2008Q1

REPORT INFORMATION
  Report Type: 
  Country: None (occurrence: None)
  Receive Date: 20080311
  Receipt Date: 20070831
  Transmission Date: 20080703
  Serious: No
  Sender: FDA-Public Use
  Company Number: US-BAYER-200712827BCC

PATIENT
  Sex: Female
  Weight: 54 kg

DRUGS (9)
  1. ALEVE [Suspect]
     Indication: ARTHRITIS
     Dosage: TOTAL DAILY DOSE: 880 MG  UNIT DOSE: 220 MG
     Route: 048
  2. EVISTA [Concomitant]
  3. TOPROL [Concomitant]
  4. VESICARE [Concomitant]
  5. 325 MG ASPIRIN [Concomitant]
  6. SINGULAIR [Concomitant]
  7. PERMAX [Concomitant]
  8. PROTONIX [Concomitant]
  9. VITAMINS [Concomitant]

REACTIONS (1)
  - ARTHRITIS [None]
